FAERS Safety Report 6237566-5 (Version None)
Quarter: 2009Q2

REPORT INFORMATION
  Report Type: 
  Country: None (occurrence: None)
  Receive Date: 20090617
  Receipt Date: 20090604
  Transmission Date: 20091009
  Serious: Yes (Hospitalization, Disabling, Other)
  Sender: FDA-Public Use
  Company Number: 09US001842

PATIENT
  Age: 27 Year
  Sex: Male

DRUGS (2)
  1. ASPIRIN [Suspect]
     Indication: LIGAMENT OPERATION
     Dosage: 650 MG, 6 TIMES DAILY, ORAL
     Route: 048
     Dates: start: 20080410
  2. VICODIN [Concomitant]

REACTIONS (9)
  - ANXIETY [None]
  - DISCOMFORT [None]
  - DIZZINESS [None]
  - FEAR [None]
  - HAEMARTHROSIS [None]
  - JOINT EFFUSION [None]
  - PAIN [None]
  - SHOCK [None]
  - STAPHYLOCOCCAL INFECTION [None]
